FAERS Safety Report 11717054 (Version 2)
Quarter: 2016Q1

REPORT INFORMATION
  Report Type: Spontaneous
  Country: US (occurrence: US)
  Receive Date: 20151109
  Receipt Date: 20160108
  Transmission Date: 20160525
  Serious: Yes (Death, Hospitalization, Other)
  Sender: FDA-Public Use
  Company Number: US-PFIZER INC-2015381647

PATIENT
  Age: 38 Year
  Sex: Male

DRUGS (4)
  1. DEPO-TESTOSTERONE [Suspect]
     Active Substance: TESTOSTERONE CYPIONATE
     Indication: HORMONE REPLACEMENT THERAPY
     Dosage: UNK
     Dates: start: 2008, end: 201005
  2. DEPO-TESTOSTERONE [Suspect]
     Active Substance: TESTOSTERONE CYPIONATE
     Dosage: UNK
     Dates: start: 2009, end: 2010
  3. ANDROGEL [Suspect]
     Active Substance: TESTOSTERONE
     Indication: HORMONE REPLACEMENT THERAPY
     Dosage: UNK
     Dates: start: 2008, end: 201005
  4. ANDROGEL [Suspect]
     Active Substance: TESTOSTERONE
     Dosage: UNK, DAILY
     Dates: start: 2009, end: 2010

REACTIONS (2)
  - Pulmonary embolism [Fatal]
  - Thrombosis [Unknown]

NARRATIVE: CASE EVENT DATE: 2008
